FAERS Safety Report 9026908 (Version 3)
Quarter: 2013Q3

REPORT INFORMATION
  Report Type: Spontaneous
  Country: US (occurrence: US)
  Receive Date: 20130123
  Receipt Date: 20130904
  Transmission Date: 20140515
  Serious: No
  Sender: FDA-Public Use
  Company Number: US-PFIZER INC-2013024129

PATIENT
  Age: 55 Year
  Sex: Male

DRUGS (2)
  1. BOSULIF [Suspect]
     Indication: CHRONIC MYELOID LEUKAEMIA
     Dosage: 400 MG, 1X/DAY
     Dates: start: 20121204
  2. BOSULIF [Suspect]
     Dosage: 400 MG, 1X/DAY
     Dates: start: 20121204

REACTIONS (4)
  - Solar dermatitis [Unknown]
  - Nausea [Unknown]
  - Diarrhoea [Unknown]
  - Humidity intolerance [Unknown]
